FAERS Safety Report 10788751 (Version 1)
Quarter: 2015Q1

REPORT INFORMATION
  Report Type: Spontaneous
  Country: US (occurrence: US)
  Receive Date: 20150212
  Receipt Date: 20150212
  Transmission Date: 20150721
  Serious: Yes (Death)
  Sender: FDA-Public Use
  Company Number: US-PFIZER INC-2015054459

PATIENT
  Sex: Female

DRUGS (1)
  1. ELLENCE [Suspect]
     Active Substance: EPIRUBICIN HYDROCHLORIDE
     Dosage: UNK

REACTIONS (1)
  - Death [Fatal]
